FAERS Safety Report 10086938 (Version 1)
Quarter: 2014Q2

REPORT INFORMATION
  Report Type: Report from Study
  Country: US (occurrence: US)
  Receive Date: 20140418
  Receipt Date: 20140418
  Transmission Date: 20141212
  Serious: Yes (Other)
  Sender: FDA-Public Use
  Company Number: PHEH2014US007565

PATIENT
  Sex: Male

DRUGS (1)
  1. EXFORGE [Suspect]
     Dosage: 1 DF, QD (UNK MG VALS AND 5 MG AMLO)
     Route: 048

REACTIONS (6)
  - Cerebrovascular accident [Unknown]
  - Arterial occlusive disease [Unknown]
  - Diabetes mellitus [Unknown]
  - Balance disorder [Unknown]
  - Mental disorder [Unknown]
  - Obesity [Unknown]
